FAERS Safety Report 5625481-7 (Version None)
Quarter: 2008Q1

REPORT INFORMATION
  Report Type: 
  Country: None (occurrence: None)
  Receive Date: 20080207
  Receipt Date: 20080129
  Transmission Date: 20080703
  Serious: Yes (Hospitalization)
  Sender: FDA-Public Use
  Company Number: WAES 0801USA05654

PATIENT
  Age: 73 Year
  Sex: Male
  Weight: 99.7913 kg

DRUGS (11)
  1. FOSAMAX [Suspect]
     Dosage: 70 MG/DAILY/PO
     Route: 048
     Dates: start: 20071025, end: 20080107
  2. SUNITINIB MALATE 37.5 MG [Suspect]
     Indication: RENAL CELL CARCINOMA
     Dosage: 37.5 MG/DAILY/PO
     Route: 048
     Dates: start: 20070926, end: 20071201
  3. SUNITINIB MALATE 37.5 MG [Suspect]
     Indication: RENAL CELL CARCINOMA
     Dosage: 37.5 MG/DAILY/PO
     Route: 048
     Dates: start: 20071227, end: 20080107
  4. SUNITINIB MALATE 37.5 MG [Suspect]
     Indication: RENAL CELL CARCINOMA
     Dosage: 37.5 MG/DAILY/PO
     Route: 048
     Dates: start: 20080114
  5. CRESTOR [Concomitant]
  6. LOTREL [Concomitant]
  7. NEXIUM [Concomitant]
  8. NIASPAN [Concomitant]
  9. PROTONIX [Concomitant]
  10. ZOFRAN [Concomitant]
  11. CALCIUM (UNSPECIFIED) (+) VITAMI [Concomitant]

REACTIONS (3)
  - GASTROENTERITIS VIRAL [None]
  - HIATUS HERNIA [None]
  - OESOPHAGITIS ULCERATIVE [None]
